FAERS Safety Report 7599706-5 (Version None)
Quarter: 2011Q3

REPORT INFORMATION
  Report Type: 
  Country: None (occurrence: None)
  Receive Date: 20110711
  Receipt Date: 20110627
  Transmission Date: 20111222
  Serious: Yes (Hospitalization, Other)
  Sender: FDA-Public Use
  Company Number: GB-RANBAXY-2011R1-44995

PATIENT
  Age: 29 Year
  Sex: Female

DRUGS (13)
  1. COMBIVIR [Suspect]
     Indication: PRODUCT USED FOR UNKNOWN INDICATION
     Dosage: UNK
     Route: 065
  2. PREDNISOLONE [Concomitant]
     Indication: PRODUCT USED FOR UNKNOWN INDICATION
     Dosage: 40 MG, UNK
     Route: 048
  3. DEXAMETHASONE [Concomitant]
     Indication: NECROTISING RETINITIS
     Dosage: 01 %, 4/1 DAYS
     Route: 061
  4. ACYCLOVIR [Suspect]
     Indication: RETINAL DISORDER
     Dosage: 400 MG, QID
     Route: 048
  5. FLUCONAZOLE [Suspect]
     Indication: PRODUCT USED FOR UNKNOWN INDICATION
     Dosage: UNK
     Route: 065
  6. AMOXICILLIN [Suspect]
     Indication: LOWER RESPIRATORY TRACT INFECTION
     Dosage: UNK
     Route: 065
  7. COTRIM [Suspect]
     Indication: PRODUCT USED FOR UNKNOWN INDICATION
     Dosage: UNK
     Route: 065
  8. FAMCICLOVIR [Suspect]
     Indication: NECROTISING RETINITIS
     Dosage: UNK
     Route: 048
  9. NEVIRAPINE [Suspect]
     Indication: PRODUCT USED FOR UNKNOWN INDICATION
     Dosage: UNK
     Route: 065
  10. LAMIVUDINE [Concomitant]
     Indication: HIV INFECTION
     Dosage: UNK
     Route: 065
  11. TENOFOVIR DISOPROXIL FUMARATE [Concomitant]
     Indication: HIV INFECTION
     Dosage: UNK
     Route: 065
  12. ACYCLOVIR [Suspect]
     Dosage: 800 MG, UNK
     Route: 065
  13. ACYCLOVIR [Suspect]
     Indication: NECROTISING RETINITIS
     Dosage: 10 MG/KG, TID
     Route: 042

REACTIONS (17)
  - SKIN DISORDER [None]
  - CATARACT [None]
  - CD4 LYMPHOCYTES DECREASED [None]
  - SWELLING [None]
  - ANGIOEDEMA [None]
  - HAEMOGLOBIN DECREASED [None]
  - NECROTISING RETINITIS [None]
  - RETINITIS [None]
  - DRUG HYPERSENSITIVITY [None]
  - RASH [None]
  - RASH MACULO-PAPULAR [None]
  - RASH MACULAR [None]
  - CHEST DISCOMFORT [None]
  - RASH ERYTHEMATOUS [None]
  - LOWER RESPIRATORY TRACT INFECTION [None]
  - VISION BLURRED [None]
  - VISUAL ACUITY REDUCED [None]
